FAERS Safety Report 14149487 (Version 5)
Quarter: 2019Q2

REPORT INFORMATION
  Report Type: Report from Study
  Country: RU (occurrence: RU)
  Receive Date: 20171101
  Receipt Date: 20190604
  Transmission Date: 20190711
  Serious: Yes (Hospitalization)
  Sender: FDA-Public Use
  Company Number: RU-ROCHE-2015050

PATIENT
  Age: 67 Year
  Sex: Male
  Weight: 75 kg

DRUGS (5)
  1. METOCLOPRAMIDE. [Concomitant]
     Active Substance: METOCLOPRAMIDE
     Indication: PREMEDICATION
     Route: 065
     Dates: start: 20170718
  2. VEMURAFENIB. [Suspect]
     Active Substance: VEMURAFENIB
     Indication: MALIGNANT MELANOMA
     Dosage: DATE OF MOST RECENT DOSE OF VEMURAFENIB PRIOR TO SAE ONSET: 20/OCT/2017
     Route: 048
     Dates: start: 20170523
  3. DEXAMETHASON [DEXAMETHASONE] [Concomitant]
     Active Substance: DEXAMETHASONE
     Indication: PREMEDICATION
     Route: 030
     Dates: start: 20170718
  4. COBIMETINIB. [Suspect]
     Active Substance: COBIMETINIB
     Indication: MALIGNANT MELANOMA
     Dosage: DATE OF MOST RECENT DOSE PRIOR TO THE EVENT: 20/OCT/2017?DOSE 60MG PER PROTOCOL.
     Route: 048
     Dates: start: 20170523
  5. PLACEBO [Suspect]
     Active Substance: UNSPECIFIED INGREDIENT
     Indication: MALIGNANT MELANOMA
     Dosage: DATE OF MOST RECENT DOSE PRIOR TO THE EVENT: 10/OCT/2017
     Route: 042
     Dates: start: 20170620

REACTIONS (1)
  - Pancreatitis necrotising [Recovered/Resolved]

NARRATIVE: CASE EVENT DATE: 20171021
